FAERS Safety Report 26130029 (Version 1)
Quarter: 2025Q4

REPORT INFORMATION
  Report Type: Spontaneous
  Country: CA (occurrence: CA)
  Receive Date: 20251208
  Receipt Date: 20251208
  Transmission Date: 20260118
  Serious: Yes (Other)
  Sender: AUROBINDO
  Company Number: CA-AUROBINDO-AUR-APL-2025-061924

PATIENT
  Age: 38 Year
  Sex: Male

DRUGS (3)
  1. AMOXICILLIN [Suspect]
     Active Substance: AMOXICILLIN
     Indication: Pneumonia
     Dosage: UNK
     Route: 065
  2. ERYTHROMYCIN [Suspect]
     Active Substance: ERYTHROMYCIN
     Indication: Pneumonia
     Dosage: UNK
     Route: 065
  3. ABRILADA (Device constitute) solution for injection in pre-filled Pen [Concomitant]
     Indication: Crohn^s disease
     Dosage: 40 MILLIGRAM

REACTIONS (2)
  - Abdominal discomfort [Not Recovered/Not Resolved]
  - Dyspnoea [Not Recovered/Not Resolved]
